FAERS Safety Report 17601919 (Version 4)
Quarter: 2020Q2

REPORT INFORMATION
  Report Type: Report from Study
  Country: US (occurrence: US)
  Receive Date: 20200330
  Receipt Date: 20200601
  Transmission Date: 20200713
  Serious: No
  Sender: FDA-Public Use
  Company Number: US-ACTELION-A-NJ2019-184816

PATIENT
  Age: 74 Year
  Sex: Female
  Weight: 81.63 kg

DRUGS (3)
  1. OPSUMIT [Suspect]
     Active Substance: MACITENTAN
     Indication: PULMONARY HYPERTENSION
     Dosage: 10 MG, QD
     Route: 048
  2. TYVASO [Suspect]
     Active Substance: TREPROSTINIL
     Indication: PRODUCT USED FOR UNKNOWN INDICATION
     Dosage: UNK
     Route: 065
     Dates: end: 202003
  3. OXYGEN. [Concomitant]
     Active Substance: OXYGEN

REACTIONS (36)
  - Hepatitis [Unknown]
  - Abdominal discomfort [Unknown]
  - Blood pressure decreased [Unknown]
  - Flatulence [Unknown]
  - Increased viscosity of upper respiratory secretion [Unknown]
  - Back pain [Unknown]
  - Malaise [Unknown]
  - Dyspnoea [Unknown]
  - Pruritus [Unknown]
  - Wheezing [Unknown]
  - Liver function test increased [Unknown]
  - Alanine aminotransferase increased [Unknown]
  - Headache [Unknown]
  - Sinus disorder [Unknown]
  - Aspartate aminotransferase increased [Unknown]
  - Dizziness [Unknown]
  - Fatigue [Unknown]
  - Abnormal faeces [Unknown]
  - Oxygen saturation decreased [Unknown]
  - Vomiting [Unknown]
  - Haemoptysis [Unknown]
  - Gait disturbance [Unknown]
  - Eructation [Unknown]
  - Hypoaesthesia [Unknown]
  - Constipation [Unknown]
  - Productive cough [Unknown]
  - Condition aggravated [Unknown]
  - Rhinorrhoea [Unknown]
  - Nasopharyngitis [Unknown]
  - Syncope [Unknown]
  - Adverse reaction [Unknown]
  - Nasal congestion [Unknown]
  - Stent placement [Unknown]
  - Sputum increased [Unknown]
  - Sneezing [Unknown]
  - Cough [Unknown]

NARRATIVE: CASE EVENT DATE: 201904
